FAERS Safety Report 10553225 (Version 1)
Quarter: 2014Q4

REPORT INFORMATION
  Report Type: Spontaneous
  Country: US (occurrence: US)
  Receive Date: 20141030
  Receipt Date: 20141030
  Transmission Date: 20150529
  Serious: No
  Sender: FDA-Public Use
  Company Number: US-TEVA-471597USA

PATIENT

DRUGS (1)
  1. DESMOPRESSIN [Suspect]
     Active Substance: DESMOPRESSIN

REACTIONS (4)
  - Abnormal behaviour [Unknown]
  - Pollakiuria [Unknown]
  - Drug ineffective [Unknown]
  - Insomnia [Unknown]
